FAERS Safety Report 4514462-2 (Version None)
Quarter: 2004Q4

REPORT INFORMATION
  Report Type: 
  Country: None (occurrence: None)
  Receive Date: 20040928
  Receipt Date: 20040824
  Transmission Date: 20050328
  Serious: No
  Sender: FDA-Public Use
  Company Number: 04P-163-0267411-00

PATIENT
  Age: 65 Year
  Sex: Female
  Weight: 43.5453 kg

DRUGS (11)
  1. HUMIRA [Suspect]
     Indication: RHEUMATOID ARTHRITIS
     Dosage: SEE IMAGE
     Route: 058
     Dates: start: 20040131, end: 20040701
  2. HUMIRA [Suspect]
     Indication: RHEUMATOID ARTHRITIS
     Dosage: SEE IMAGE
     Route: 058
     Dates: start: 20040814
  3. METHOTREXATE [Concomitant]
  4. NABUMETONE [Concomitant]
  5. PREDNISONE [Concomitant]
  6. FOLIC ACID [Concomitant]
  7. ALENDRONATE SODIUM [Concomitant]
  8. ULTRACET [Concomitant]
  9. CALCIUM WITH VITAMIN D [Concomitant]
  10. MULTI-VITAMINS [Concomitant]
  11. GLUCOSAMINE [Concomitant]

REACTIONS (5)
  - ARTHRITIS [None]
  - CELLULITIS [None]
  - FEELING HOT [None]
  - LIVER FUNCTION TEST ABNORMAL [None]
  - RASH MACULAR [None]
